FAERS Safety Report 4874622-8 (Version None)
Quarter: 2006Q1

REPORT INFORMATION
  Report Type: 
  Country: None (occurrence: None)
  Receive Date: 20060106
  Receipt Date: 20051004
  Transmission Date: 20060701
  Serious: Yes (Hospitalization, Disabling)
  Sender: FDA-Public Use
  Company Number: US-MERCK-0510USA02626

PATIENT
  Age: 48 Year
  Sex: Male
  Weight: 108 kg

DRUGS (1)
  1. VIOXX [Suspect]
     Indication: PAIN MANAGEMENT
     Route: 048
     Dates: start: 20020901, end: 20021101

REACTIONS (7)
  - ARTERIAL OCCLUSIVE DISEASE [None]
  - CARDIOVASCULAR DISORDER [None]
  - CHEST PAIN [None]
  - CORONARY ARTERY OCCLUSION [None]
  - DEPRESSION [None]
  - DYSPNOEA [None]
  - MYOCARDIAL INFARCTION [None]
